FAERS Safety Report 8346975-X (Version None)
Quarter: 2012Q2

REPORT INFORMATION
  Report Type: 
  Country: None (occurrence: None)
  Receive Date: 20120507
  Receipt Date: 20120507
  Transmission Date: 20120825
  Serious: Yes (Hospitalization)
  Sender: FDA-Public Use
  Company Number: None

PATIENT
  Sex: Male
  Weight: 83 kg

DRUGS (22)
  1. FLUCONAZOLE [Concomitant]
  2. LEVALBUTEROL HCL [Concomitant]
  3. OMEPRAZOLE [Concomitant]
  4. FLUTICASONE PROPIONATE/SALMETEROL [Concomitant]
  5. CETIRIZINE [Concomitant]
  6. FLUTICASONE NASAL [Concomitant]
  7. IPRATROPIUM BROMIDE [Concomitant]
  8. PROCHLORPERAZINE [Concomitant]
  9. TRAZODONE HCL [Concomitant]
  10. CODEINE-GUAIFENESIN [Concomitant]
  11. ONDANSETRON [Concomitant]
  12. ALBUTEROL [Concomitant]
  13. FOLIC ACID [Concomitant]
  14. KETOCONAZOLE [Concomitant]
  15. TIOTROPIUM [Concomitant]
  16. BEVACIZUMAB (RHUMAB VEGF) [Suspect]
     Dosage: 1220 MG
  17. VENTOLIN HFA [Concomitant]
  18. LEVOFLOXACIN [Concomitant]
  19. LISINOPRIL [Concomitant]
  20. METRONIDAZOLE [Concomitant]
  21. NICOTINE [Concomitant]
  22. OXYCODONE HCL [Concomitant]

REACTIONS (1)
  - HAEMATEMESIS [None]
